FAERS Safety Report 5675022-3 (Version None)
Quarter: 2008Q1

REPORT INFORMATION
  Report Type: 
  Country: None (occurrence: None)
  Receive Date: 20080320
  Receipt Date: 20080310
  Transmission Date: 20080703
  Serious: Yes (Other)
  Sender: FDA-Public Use
  Company Number: US-PFIZER INC-2008023024

PATIENT
  Sex: Male

DRUGS (3)
  1. LIPITOR [Suspect]
  2. ZETIA [Suspect]
  3. TRICOR [Suspect]

REACTIONS (1)
  - BLOOD TRIGLYCERIDES INCREASED [None]
